FAERS Safety Report 13220140 (Version 3)
Quarter: 2017Q1

REPORT INFORMATION
  Report Type: Spontaneous
  Country: ES (occurrence: ES)
  Receive Date: 20170210
  Receipt Date: 20170216
  Transmission Date: 20170428
  Serious: Yes (Other)
  Sender: FDA-Public Use
  Company Number: ES-009507513-1702ESP002664

PATIENT
  Age: 51 Year
  Sex: Male

DRUGS (2)
  1. EFFICIB [Suspect]
     Active Substance: METFORMIN HYDROCHLORIDE\SITAGLIPTIN PHOSPHATE
     Dosage: UNK
     Route: 048
     Dates: start: 20161028, end: 20161028
  2. LANTUS [Suspect]
     Active Substance: INSULIN GLARGINE
     Dosage: 100 UNIDADES/ML, IN CATRIDGE,  UNK
     Route: 058
     Dates: start: 20161028, end: 20161028

REACTIONS (2)
  - Hypoglycaemia [Recovered/Resolved]
  - Extra dose administered [Recovered/Resolved]

NARRATIVE: CASE EVENT DATE: 20161028
